FAERS Safety Report 7548629-6 (Version None)
Quarter: 2011Q2

REPORT INFORMATION
  Report Type: 
  Country: None (occurrence: None)
  Receive Date: 20110615
  Receipt Date: 20110531
  Transmission Date: 20111010
  Serious: Yes (Hospitalization)
  Sender: FDA-Public Use
  Company Number: FR-JNJFOC-20110601245

PATIENT
  Age: 74 Year
  Sex: Female

DRUGS (13)
  1. LANSOPRAZOLE [Concomitant]
  2. DEDROGYL [Concomitant]
  3. ESCITALOPRAM [Concomitant]
  4. JANUVIA [Concomitant]
  5. XANAX [Concomitant]
  6. CELIPROLOL [Concomitant]
  7. PREDNISONE [Suspect]
     Indication: CROHN'S DISEASE
     Route: 048
  8. AZATHIOPRINE SODIUM [Suspect]
     Indication: CROHN'S DISEASE
     Route: 048
     Dates: start: 20040101
  9. PREDNISOLONE [Concomitant]
  10. REMICADE [Suspect]
     Indication: CROHN'S DISEASE
     Route: 042
     Dates: start: 20060501, end: 20100101
  11. ZOLPIDEM [Concomitant]
  12. CALCITE [Concomitant]
  13. RULID [Concomitant]

REACTIONS (1)
  - HODGKIN'S DISEASE STAGE II [None]
